FAERS Safety Report 19443646 (Version 1)
Quarter: 2021Q2

REPORT INFORMATION
  Report Type: Spontaneous
  Country: US (occurrence: US)
  Receive Date: 20210621
  Receipt Date: 20210621
  Transmission Date: 20210717
  Serious: Yes (Disabling, Other)
  Sender: FDA-Public Use
  Company Number: US-ORGANON-O2106USA001579

PATIENT
  Age: 59 Year
  Sex: Female

DRUGS (3)
  1. SINGULAIR [Suspect]
     Active Substance: MONTELUKAST SODIUM
     Indication: ASTHMA
     Dosage: 10 MG/1 PER DAY
     Route: 048
     Dates: start: 201809, end: 201909
  2. SINGULAIR [Suspect]
     Active Substance: MONTELUKAST SODIUM
     Dosage: UNK
     Route: 048
     Dates: start: 202103
  3. XOLAIR [Suspect]
     Active Substance: OMALIZUMAB
     Dosage: UNK

REACTIONS (4)
  - Pneumonia [Not Recovered/Not Resolved]
  - Loss of consciousness [Unknown]
  - Dyspnoea [Not Recovered/Not Resolved]
  - Asthma [Not Recovered/Not Resolved]

NARRATIVE: CASE EVENT DATE: 201909
